FAERS Safety Report 22113356 (Version 1)
Quarter: 2023Q1

REPORT INFORMATION
  Report Type: Report from Study
  Country: US (occurrence: None)
  Receive Date: 20230320
  Receipt Date: 20230320
  Transmission Date: 20230418
  Serious: Yes (Death)
  Sender: FDA-Public Use
  Company Number: US-ROCHE-3310298

PATIENT

DRUGS (3)
  1. ATEZOLIZUMAB [Suspect]
     Active Substance: ATEZOLIZUMAB
     Indication: Inflammatory carcinoma of the breast
     Dosage: ON 2/MAY/2018, PATIENT RECEIVED THE MOST RECENT DOSE OF ATEZOLIZUMAB PRIOR TO AE/SAE
     Route: 065
     Dates: start: 20171130
  2. COBIMETINIB [Suspect]
     Active Substance: COBIMETINIB
     Indication: Inflammatory carcinoma of the breast
     Dosage: ON 2/MAY/2018, PATIENT RECEIVED THE MOST RECENT DOSE OF COBIMETINIB  PRIOR TO AE/SAE
     Route: 065
     Dates: start: 20171130
  3. ERIBULIN [Suspect]
     Active Substance: ERIBULIN
     Indication: Inflammatory carcinoma of the breast
     Dosage: ON 2/MAY/2018, PATIENT RECEIVED THE MOST RECENT DOSE OF ERIBULIN PRIOR TO AE/SAE
     Route: 065
     Dates: start: 20171130

REACTIONS (1)
  - Disease progression [Fatal]
